FAERS Safety Report 8357430-5 (Version None)
Quarter: 2012Q2

REPORT INFORMATION
  Report Type: 
  Country: None (occurrence: None)
  Receive Date: 20120514
  Receipt Date: 20120502
  Transmission Date: 20120825
  Serious: Yes (Disabling)
  Sender: FDA-Public Use
  Company Number: JP-VERTEX PHARMACEUTICALS INC.-AE-2012-004558

PATIENT
  Age: 68 Year
  Sex: Male

DRUGS (8)
  1. EGLUCON [Concomitant]
     Route: 048
  2. VOLTAREN [Concomitant]
     Route: 054
     Dates: start: 20120202, end: 20120202
  3. EPADEL S [Concomitant]
     Route: 048
  4. PEGINTERFERON ALFA-2B [Concomitant]
     Route: 051
     Dates: start: 20120202
  5. ACTOS [Concomitant]
     Route: 048
  6. TELAVIC (TELAPREVIR) [Suspect]
     Indication: HEPATITIS C
     Route: 048
     Dates: start: 20120202
  7. REBETOL [Concomitant]
     Indication: HEPATITIS C
     Route: 048
     Dates: start: 20120202, end: 20120229
  8. REBETOL [Concomitant]
     Route: 048
     Dates: start: 20120301

REACTIONS (2)
  - EAR CANAL ABRASION [None]
  - SKULL FRACTURED BASE [None]
